FAERS Safety Report 8065467-9 (Version None)
Quarter: 2012Q1

REPORT INFORMATION
  Report Type: 
  Country: None (occurrence: None)
  Receive Date: 20120117
  Receipt Date: 20120105
  Transmission Date: 20120608
  Serious: Yes (Life-Threatening)
  Sender: FDA-Public Use
  Company Number: DSA_48824_2012

PATIENT
  Sex: Female

DRUGS (4)
  1. WELLBUTRIN [Suspect]
     Indication: DEPRESSION
     Dosage: DF, ONE TABLET EVERY TWO DAYS, DOSAGE UNKNOWN
     Dates: start: 20110101
  2. ESCITALOPRAM OXALATE [Suspect]
     Indication: DEPRESSION
     Dosage: DF
     Dates: end: 20110901
  3. ESCITALOPRAM OXALATE [Suspect]
     Indication: AGORAPHOBIA
     Dosage: DF
     Dates: end: 20110901
  4. ESCITALOPRAM OXALATE [Suspect]
     Indication: BULIMIA NERVOSA
     Dosage: DF
     Dates: end: 20110901

REACTIONS (5)
  - DISEASE RECURRENCE [None]
  - BULIMIA NERVOSA [None]
  - FATIGUE [None]
  - DEPRESSION [None]
  - SOMNOLENCE [None]
